FAERS Safety Report 6133490-7 (Version None)
Quarter: 2009Q1

REPORT INFORMATION
  Report Type: 
  Country: None (occurrence: None)
  Receive Date: 20090324
  Receipt Date: 20090324
  Transmission Date: 20090719
  Serious: No
  Sender: FDA-Public Use
  Company Number: None

PATIENT
  Age: 50 Year
  Sex: Male

DRUGS (1)
  1. LISINOPRIL [Suspect]
     Indication: HYPERLIPIDAEMIA
     Dates: start: 20090114, end: 20090116

REACTIONS (3)
  - ANGIOEDEMA [None]
  - ERYTHEMA [None]
  - LIP SWELLING [None]
